FAERS Safety Report 21302997 (Version 1)
Quarter: 2022Q3

REPORT INFORMATION
  Report Type: Report from Study
  Country: CA (occurrence: CA)
  Receive Date: 20220907
  Receipt Date: 20220907
  Transmission Date: 20221026
  Serious: Yes (Disabling)
  Sender: FDA-Public Use
  Company Number: CA-UCBSA-2022002671

PATIENT
  Age: 26 Year
  Sex: Female

DRUGS (10)
  1. BRIVARACETAM [Suspect]
     Active Substance: BRIVARACETAM
     Indication: Partial seizures
     Dosage: 100MG IN AM, 50MG HS, 10MG PRN
     Dates: start: 20200301
  2. BRIVARACETAM [Suspect]
     Active Substance: BRIVARACETAM
     Indication: Epilepsy
     Dosage: 100 MILLIGRAM, 2X/DAY (BID)
  3. BRIVARACETAM [Suspect]
     Active Substance: BRIVARACETAM
     Indication: Off label use
     Dosage: 100MG IN AM AND 150MG IN PM
  4. BRIVARACETAM [Suspect]
     Active Substance: BRIVARACETAM
     Dosage: 150 MILLIGRAM, 2X/DAY (BID)
  5. BRIVARACETAM [Suspect]
     Active Substance: BRIVARACETAM
     Dosage: 100MG IN AM, 50MG HS, 10MG PRN
  6. VIMPAT [Suspect]
     Active Substance: LACOSAMIDE
     Indication: Partial seizures
     Dosage: 200 MILLIGRAM, 2X/DAY (BID)
  7. LAMOTRIGINE [Concomitant]
     Active Substance: LAMOTRIGINE
     Indication: Seizure
     Dosage: 300 MILLIGRAM, 2X/DAY (BID)
  8. CLOBAZAM [Concomitant]
     Active Substance: CLOBAZAM
     Indication: Seizure
     Dosage: 20 QHS WITH EXTRA 10MG
  9. HUMALOG [Concomitant]
     Active Substance: INSULIN LISPRO
     Indication: Diabetes mellitus
     Dosage: UNK
  10. TRESIBA [Concomitant]
     Active Substance: INSULIN DEGLUDEC
     Indication: Diabetes mellitus
     Dosage: UNK

REACTIONS (4)
  - Disability [Unknown]
  - Memory impairment [Not Recovered/Not Resolved]
  - Off label use [Unknown]
  - Prescribed overdose [Unknown]

NARRATIVE: CASE EVENT DATE: 20200301
